FAERS Safety Report 5219132-3 (Version None)
Quarter: 2007Q1

REPORT INFORMATION
  Report Type: 
  Country: None (occurrence: None)
  Receive Date: 20070124
  Receipt Date: 20070124
  Transmission Date: 20070707
  Serious: Yes (Other)
  Sender: FDA-Public Use
  Company Number: None

PATIENT
  Age: 56 Year
  Sex: Male
  Weight: 95.2554 kg

DRUGS (17)
  1. VANCOMYCIN [Suspect]
     Indication: CELLULITIS
     Dosage: 1000 MG IV DAILY
     Route: 042
     Dates: start: 20061023, end: 20061024
  2. VANCOMYCIN [Suspect]
     Indication: WOUND INFECTION
     Dosage: 1000 MG IV DAILY
     Route: 042
     Dates: start: 20061023, end: 20061024
  3. UNASYN [Suspect]
     Indication: CELLULITIS
     Dosage: 3.375 MG IV
     Route: 042
     Dates: start: 20061023, end: 20061024
  4. UNASYN [Suspect]
     Indication: WOUND INFECTION
     Dosage: 3.375 MG IV
     Route: 042
     Dates: start: 20061023, end: 20061024
  5. OXYCODONE AND ACETAMINOPHEN [Concomitant]
  6. AMITRIPTYLINE HCL [Concomitant]
  7. UNASYN [Concomitant]
  8. FOLIC ACID [Concomitant]
  9. FUROSEMIDE [Concomitant]
  10. GABAPENTIN [Concomitant]
  11. LISINOPRIL [Concomitant]
  12. METOPROLOL TARTRATE [Concomitant]
  13. MORPHINE [Concomitant]
  14. SIMVASTATIN [Concomitant]
  15. SPIRONOLACTONE [Concomitant]
  16. VANCOMYCIN [Concomitant]
  17. WARFARIN SODIUM [Concomitant]

REACTIONS (3)
  - DRUG HYPERSENSITIVITY [None]
  - FLUSHING [None]
  - RASH [None]
